FAERS Safety Report 11830594 (Version 1)
Quarter: 2015Q4

REPORT INFORMATION
  Report Type: Report from Study
  Country: US (occurrence: US)
  Receive Date: 20151214
  Receipt Date: 20151214
  Transmission Date: 20160305
  Serious: No
  Sender: FDA-Public Use
  Company Number: US-009507513-1512USA006464

PATIENT
  Age: 50 Year
  Sex: Female

DRUGS (3)
  1. SIMULECT [Suspect]
     Active Substance: BASILIXIMAB
     Indication: GLIOBLASTOMA
     Dosage: UNK
     Dates: start: 201502
  2. DENDRITIC CELL VACCINE (UNSPECIFIED) [Suspect]
     Active Substance: INVESTIGATIONAL PRODUCT
     Indication: GLIOBLASTOMA
     Dosage: UNK
     Dates: start: 201502
  3. TEMODAR [Suspect]
     Active Substance: TEMOZOLOMIDE
     Indication: GLIOBLASTOMA
     Dosage: UNK
     Dates: start: 201502

REACTIONS (3)
  - Malignant neoplasm progression [None]
  - Disease progression [Not Recovered/Not Resolved]
  - Glioblastoma [None]

NARRATIVE: CASE EVENT DATE: 2015
